FAERS Safety Report 9388788 (Version 2)
Quarter: 2013Q4

REPORT INFORMATION
  Report Type: Spontaneous
  Country: CH (occurrence: CH)
  Receive Date: 20130708
  Receipt Date: 20131112
  Transmission Date: 20140711
  Serious: Yes (Other)
  Sender: FDA-Public Use
  Company Number: PHHY2013CH070270

PATIENT
  Age: 51 Year
  Sex: Female

DRUGS (9)
  1. CUBICIN [Suspect]
     Indication: ARTHRITIS INFECTIVE
     Dosage: 7.2 MG/KG, 350 MG / 30 MIN INFUSION
     Route: 042
  2. CUBICIN [Suspect]
     Indication: SPINAL CORD INFECTION
  3. CUBICIN [Suspect]
     Indication: OFF LABEL USE
  4. RIFAMPICIN [Suspect]
     Indication: ARTHRITIS INFECTIVE
     Dosage: 600 MG, QD
     Route: 048
     Dates: start: 20130930, end: 20131004
  5. ALBUMIN [Concomitant]
     Dates: start: 20101001
  6. PREGABALIN [Concomitant]
     Dates: start: 20101002, end: 20101003
  7. OXAZEPAM [Concomitant]
     Dates: start: 20100929, end: 20101001
  8. DICLOFENAC [Concomitant]
     Dates: start: 20100929
  9. METAMIZOLE [Concomitant]
     Dates: start: 20100929

REACTIONS (2)
  - Ileus [Recovered/Resolved]
  - Rash [Recovered/Resolved]
